FAERS Safety Report 7250075-X (Version None)
Quarter: 2011Q1

REPORT INFORMATION
  Report Type: 
  Country: None (occurrence: None)
  Receive Date: 20110128
  Receipt Date: 20110106
  Transmission Date: 20110831
  Serious: Yes (Death, Other)
  Sender: FDA-Public Use
  Company Number: FR-BAYER-2011-001646

PATIENT
  Age: 17 Year
  Sex: Female
  Weight: 60 kg

DRUGS (28)
  1. CIFLOX [Interacting]
     Dosage: 1200 MG, QD
  2. MYCOPHENOLATE MOFETIL [Interacting]
     Dosage: 3000 MG, QD
     Route: 042
  3. CYCLOSPORINE [Concomitant]
  4. VANCOMYCIN [Concomitant]
     Indication: PYREXIA
     Dosage: UNK
  5. ACETAMINOPHEN [Concomitant]
     Indication: ANALGESIC THERAPY
     Dosage: 3600 MG, QD
  6. MYCOPHENOLATE MOFETIL [Interacting]
     Indication: IMMUNOSUPPRESSION
     Dosage: 1800 MG, QD
     Route: 042
  7. CYCLOSPORINE [Concomitant]
     Indication: BONE MARROW TRANSPLANT
     Dosage: 100 MG, BID
  8. ALIZAPRIDE [Concomitant]
     Dosage: 300 MG, QD
  9. MYCOPHENOLATE MOFETIL [Interacting]
     Dosage: 4500 MG, QD
     Route: 042
  10. ANTILYMPHOCYTE IMMUNOGLOBULIN (HORSE) [Concomitant]
     Indication: BONE MARROW CONDITIONING REGIMEN
     Dosage: 100 MG/KG, UNK
  11. AMPHOTERICIN B [Concomitant]
     Indication: INFECTION PROPHYLAXIS
     Dosage: 3 G, QD
  12. FUROSEMIDE [Concomitant]
     Dosage: 40 MG, QD
  13. TRIMETHOPRIM + SULFAMETHOXAZOLE [Concomitant]
     Dosage: UNK UNK, QOD
  14. CYCLOPHOSPHAMIDE [Concomitant]
     Indication: BONE MARROW CONDITIONING REGIMEN
     Dosage: 200 MG/KG, UNK
  15. KETAMINE [Concomitant]
     Indication: ANALGESIC THERAPY
     Dosage: 30 MG, QD
  16. DEFIBROTIDE [Concomitant]
     Indication: PROPHYLAXIS
  17. CIFLOX [Suspect]
     Indication: INFECTION PROPHYLAXIS
     Dosage: 800 MG, QD
     Route: 042
  18. AMIKACIN [Concomitant]
     Indication: PYREXIA
     Dosage: UNK
  19. OMEPRAZOLE BAYER 10 MG [Concomitant]
     Dosage: 80 MG, QD
  20. HYDROXYZINE [Concomitant]
     Dosage: 50 MG, QD
  21. URSODEOXYCHOLIC ACID [Concomitant]
     Dosage: 500 MG, QD
  22. VALACICLOVIR [Concomitant]
     Dosage: 1000 MG, QD
  23. CASPOFUNGIN [Concomitant]
     Indication: PYREXIA
     Dosage: 70 MG, QD
  24. BUSULFAN [Concomitant]
     Indication: BONE MARROW CONDITIONING REGIMEN
     Dosage: 11.1 MG/KG, UNK
     Route: 042
  25. PIPERACILLIN AND TAZOBACTAM [Concomitant]
     Indication: PYREXIA
     Dosage: 12 G, QD
  26. MORPHINE [Concomitant]
     Indication: ANALGESIC THERAPY
  27. GENTAMICIN [Concomitant]
     Indication: INFECTION PROPHYLAXIS
     Dosage: 240 MG, QD
  28. VANCOMYCIN [Concomitant]
     Route: 049

REACTIONS (4)
  - THROMBOTIC MICROANGIOPATHY [None]
  - ACUTE GRAFT VERSUS HOST DISEASE IN SKIN [None]
  - DIARRHOEA [None]
  - ACUTE GRAFT VERSUS HOST DISEASE IN INTESTINE [None]
